FAERS Safety Report 5409899-3 (Version None)
Quarter: 2007Q3

REPORT INFORMATION
  Report Type: 
  Country: None (occurrence: None)
  Receive Date: 20070809
  Receipt Date: 20070801
  Transmission Date: 20080115
  Serious: Yes (Other)
  Sender: FDA-Public Use
  Company Number: US-ASTRAZENECA-2007UW18544

PATIENT
  Age: 65 Year
  Sex: Female
  Weight: 97.5 kg

DRUGS (12)
  1. ARIMIDEX [Suspect]
     Indication: BREAST CANCER STAGE I
     Route: 048
     Dates: start: 20060101
  2. LOPRESSOR [Concomitant]
  3. MAXZIDE [Concomitant]
  4. LISINOPRIL [Concomitant]
  5. CELEBREX [Concomitant]
  6. ZOLOFT [Concomitant]
  7. FLEXERIL [Concomitant]
  8. LYRICA [Concomitant]
  9. OCUVITE [Concomitant]
  10. BELLERGAL [Concomitant]
  11. PREVACID [Concomitant]
  12. POTASSIUM CHLORIDE [Concomitant]

REACTIONS (6)
  - ANGIOPATHY [None]
  - DRY MOUTH [None]
  - HOT FLUSH [None]
  - LICHEN PLANUS [None]
  - NEUROPATHY PERIPHERAL [None]
  - SJOGREN'S SYNDROME [None]
